FAERS Safety Report 19066562 (Version 2)
Quarter: 2021Q3

REPORT INFORMATION
  Report Type: Spontaneous
  Country: CA (occurrence: CA)
  Receive Date: 20210328
  Receipt Date: 20210712
  Transmission Date: 20211014
  Serious: Yes (Hospitalization)
  Sender: FDA-Public Use
  Company Number: CA-TEVA-2021-CA-1893721

PATIENT
  Age: 84 Year
  Sex: Female

DRUGS (3)
  1. PIPERACILLIN/TAZOBACTAM [Concomitant]
     Active Substance: PIPERACILLIN SODIUM\TAZOBACTAM SODIUM
     Indication: EMPHYSEMATOUS CYSTITIS
     Dosage: 13.2 GRAM DAILY;
     Route: 042
  2. SOLU?MEDROL [Suspect]
     Active Substance: METHYLPREDNISOLONE SODIUM SUCCINATE
     Indication: DRUG THERAPY
     Dosage: 1 GRAM DAILY;
     Route: 042
  3. PREDNISONE. [Suspect]
     Active Substance: PREDNISONE
     Indication: DRUG THERAPY
     Dosage: 50 MILLIGRAM DAILY;
     Route: 048

REACTIONS (2)
  - Endophthalmitis [Recovering/Resolving]
  - Nocardiosis [Recovering/Resolving]
